FAERS Safety Report 5829555-7 (Version None)
Quarter: 2008Q3

REPORT INFORMATION
  Report Type: 
  Country: None (occurrence: None)
  Receive Date: 20080729
  Receipt Date: 20080722
  Transmission Date: 20090109
  Serious: Yes (Hospitalization, Other)
  Sender: FDA-Public Use
  Company Number: 2008SP011623

PATIENT
  Age: 44 Year
  Sex: Male

DRUGS (2)
  1. RIBAVIRIN [Suspect]
     Indication: HEPATITIS C
     Dosage: PO
     Route: 048
     Dates: start: 20000101
  2. INTRON A [Suspect]
     Indication: HEPATITIS C
     Dates: start: 20000101

REACTIONS (9)
  - CHILLS [None]
  - CHOLECYSTECTOMY [None]
  - CHRONIC HEPATIC FAILURE [None]
  - EPISTAXIS [None]
  - LIVER TRANSPLANT [None]
  - PLATELET COUNT DECREASED [None]
  - PYREXIA [None]
  - SPLEEN DISORDER [None]
  - VOMITING [None]
